APPROVED DRUG PRODUCT: DICLOFENAC SODIUM
Active Ingredient: DICLOFENAC SODIUM
Strength: 2%
Dosage Form/Route: SOLUTION;TOPICAL
Application: A217646 | Product #001 | TE Code: AB
Applicant: ENCUBE ETHICALS PRIVATE LTD
Approved: Apr 9, 2025 | RLD: No | RS: No | Type: RX